FAERS Safety Report 23724376 (Version 1)
Quarter: 2024Q2

REPORT INFORMATION
  Report Type: Spontaneous
  Country: US (occurrence: US)
  Receive Date: 20240409
  Receipt Date: 20240409
  Transmission Date: 20240715
  Serious: No
  Sender: FDA-Public Use
  Company Number: US-FOUNDATIONCONSUMERHC-2023-US-020329

PATIENT
  Sex: Female

DRUGS (2)
  1. PLAN B ONE-STEP [Suspect]
     Active Substance: LEVONORGESTREL
     Indication: Product used for unknown indication
     Route: 048
  2. Larin 24 FE Birth control [Concomitant]
     Route: 065

REACTIONS (6)
  - Intentional product misuse [Recovered/Resolved]
  - Back pain [Unknown]
  - Epistaxis [Unknown]
  - Pain [Unknown]
  - Fatigue [Unknown]
  - Product use in unapproved indication [Recovered/Resolved]
